FAERS Safety Report 6870937 (Version 5)
Quarter: 2019Q2

REPORT INFORMATION
  Report Type: Spontaneous
  Country: CA (occurrence: CA)
  Receive Date: 20081231
  Receipt Date: 20190528
  Transmission Date: 20190711
  Serious: Yes (Hospitalization, Other)
  Sender: FDA-Public Use
  Company Number: CA-PFIZER INC-2008158270

PATIENT
  Age: 91 Year
  Sex: Female

DRUGS (14)
  1. IPRATROPIUM [Suspect]
     Active Substance: IPRATROPIUM
     Dosage: 500 UG, UNK
     Route: 065
  2. ETIDRONATE [Concomitant]
     Active Substance: ETIDRONATE DISODIUM
     Dosage: 400 MG, 1X/DAY
     Route: 065
  3. SALBUTAMOL [Suspect]
     Active Substance: ALBUTEROL
     Dosage: 100 UG, 2X/DAY
     Route: 055
  4. SALBUTAMOL [Suspect]
     Active Substance: ALBUTEROL
     Dosage: 50UG (COMBINED) BY INHALER 1 OR 2 PUFFS, 2X/DAY
     Route: 055
  5. LYRICA [Suspect]
     Active Substance: PREGABALIN
     Indication: OSTEOPOROSIS
     Dosage: 50 MG, 1X/DAY
     Route: 048
  6. LYRICA [Suspect]
     Active Substance: PREGABALIN
     Indication: OSTEOARTHRITIS
  7. CALCIUM CARBONATE. [Concomitant]
     Active Substance: CALCIUM CARBONATE
     Dosage: 500 MG, 1X/DAY
     Route: 065
  8. CELECOXIB. [Concomitant]
     Active Substance: CELECOXIB
     Dosage: 100 MG, ONCE OR TWICE DAILY
  9. IBUPROFEN. [Concomitant]
     Active Substance: IBUPROFEN
     Dosage: 400 MG, SINGLE
     Route: 065
  10. FLUTICASONE. [Concomitant]
     Active Substance: FLUTICASONE
     Dosage: 125 UG, UNK
     Route: 065
  11. ACETAMINOPHEN. [Concomitant]
     Active Substance: ACETAMINOPHEN
     Dosage: 325-600 MG, DAILY
     Route: 065
  12. VITAMIN D [Concomitant]
     Active Substance: VITAMIN D NOS
     Dosage: 400 IU, 1X/DAY
     Route: 065
  13. OMEPRAZOLE. [Concomitant]
     Active Substance: OMEPRAZOLE
     Dosage: 20 MG, 1X/DAY
     Route: 065
  14. CELEBREX [Concomitant]
     Active Substance: CELECOXIB
     Dosage: UNK
     Route: 065

REACTIONS (18)
  - Chronic obstructive pulmonary disease [Unknown]
  - Tachycardia [Recovered/Resolved]
  - Blood creatinine increased [Unknown]
  - Chest pain [Unknown]
  - Urinary tract infection [Unknown]
  - C-reactive protein increased [Unknown]
  - Atelectasis [Unknown]
  - Anxiety [Unknown]
  - White blood cell count increased [Unknown]
  - Blood lactate dehydrogenase increased [Unknown]
  - Cough [Unknown]
  - Dyspnoea [Unknown]
  - Neutrophil function disorder [Unknown]
  - Blood pressure increased [Unknown]
  - Wheezing [Unknown]
  - Thrombocytopenia [Recovered/Resolved]
  - Palpitations [Unknown]
  - Oxygen saturation decreased [Recovered/Resolved]

NARRATIVE: CASE EVENT DATE: 2008
